FAERS Safety Report 9879842 (Version 3)
Quarter: 2014Q1

REPORT INFORMATION
  Report Type: Spontaneous
  Country: JP (occurrence: JP)
  Receive Date: 20140206
  Receipt Date: 20140224
  Transmission Date: 20141002
  Serious: Yes (Hospitalization)
  Sender: FDA-Public Use
  Company Number: JP-ABBVIE-13P-087-1181420-00

PATIENT
  Age: 61 Year
  Sex: Female

DRUGS (12)
  1. HUMIRA [Suspect]
     Indication: RHEUMATOID ARTHRITIS
     Route: 058
     Dates: start: 20111121, end: 20131202
  2. RHEUMATREX [Suspect]
     Indication: RHEUMATOID ARTHRITIS
     Route: 048
     Dates: start: 20110217, end: 20110314
  3. RHEUMATREX [Suspect]
     Dates: start: 20110315, end: 20110523
  4. RHEUMATREX [Suspect]
     Dates: start: 20110524, end: 20110606
  5. RHEUMATREX [Suspect]
     Dates: start: 20110607, end: 20131130
  6. FOLIC ACID [Concomitant]
     Indication: PROPHYLAXIS
     Route: 048
     Dates: end: 20131202
  7. ALENDRONATE SODIUM HYDRATE [Concomitant]
     Indication: OSTEOPOROSIS
     Dates: start: 20110413
  8. REBAMIPIDE [Concomitant]
     Indication: PRODUCT USED FOR UNKNOWN INDICATION
     Dosage: ONCE OR TWICE PER DAY
     Dates: start: 20101225
  9. CELECOXIB [Concomitant]
     Indication: PRODUCT USED FOR UNKNOWN INDICATION
     Dosage: 100-200MG, ONCE OR TWICE PER DAY
     Route: 048
     Dates: start: 20101225
  10. PREDNISOLONE [Concomitant]
     Indication: RHEUMATOID ARTHRITIS
     Route: 048
     Dates: start: 20110124, end: 20120401
  11. TACROLIMUS HYDRATE [Concomitant]
     Indication: RHEUMATOID ARTHRITIS
     Route: 048
     Dates: start: 20110706, end: 20130107
  12. LANSOPRAZOLE [Concomitant]
     Indication: GASTROOESOPHAGEAL REFLUX DISEASE
     Route: 048
     Dates: start: 20110124, end: 20130517

REACTIONS (3)
  - Pneumonia [Recovered/Resolved]
  - Cough [Unknown]
  - Productive cough [Unknown]
